FAERS Safety Report 17384080 (Version 1)
Quarter: 2020Q1

REPORT INFORMATION
  Report Type: Spontaneous
  Country: US (occurrence: US)
  Receive Date: 20200206
  Receipt Date: 20200206
  Transmission Date: 20200409
  Serious: Yes (Other)
  Sender: FDA-Public Use
  Company Number: US-ABBVIE-19K-163-2848046-00

PATIENT
  Age: 59 Year
  Sex: Male
  Weight: 103.51 kg

DRUGS (4)
  1. HUMIRA [Suspect]
     Active Substance: ADALIMUMAB
     Indication: PSORIASIS
     Route: 058
     Dates: start: 2016, end: 201710
  2. HUMIRA [Suspect]
     Active Substance: ADALIMUMAB
     Indication: PSORIASIS
     Route: 058
     Dates: start: 201710, end: 20190709
  3. ADVIL [Concomitant]
     Active Substance: IBUPROFEN
     Indication: PAIN
  4. CLARITIN [Concomitant]
     Active Substance: LORATADINE
     Indication: HYPERSENSITIVITY

REACTIONS (1)
  - Malignant melanoma in situ [Not Recovered/Not Resolved]

NARRATIVE: CASE EVENT DATE: 20190709
